FAERS Safety Report 6593919-7 (Version None)
Quarter: 2010Q1

REPORT INFORMATION
  Report Type: 
  Country: None (occurrence: None)
  Receive Date: 20100222
  Receipt Date: 20100218
  Transmission Date: 20100710
  Serious: Yes (Death, Life-Threatening, Hospitalization)
  Sender: FDA-Public Use
  Company Number: PHEH2010US02585

PATIENT
  Sex: Male
  Weight: 76.4 kg

DRUGS (1)
  1. ZOMETA [Suspect]
     Dosage: 3 MG IV ONCE
     Route: 042
     Dates: start: 20091229

REACTIONS (2)
  - RENAL FAILURE [None]
  - RENAL IMPAIRMENT [None]
